FAERS Safety Report 21683531 (Version 1)
Quarter: 2022Q4

REPORT INFORMATION
  Report Type: Report from Study
  Country: GB (occurrence: GB)
  Receive Date: 20221205
  Receipt Date: 20221205
  Transmission Date: 20230113
  Serious: Yes (Hospitalization, Other)
  Sender: FDA-Public Use
  Company Number: GB-JNJFOC-20200603092

PATIENT
  Age: 83 Year
  Sex: Female

DRUGS (34)
  1. BORTEZOMIB [Suspect]
     Active Substance: BORTEZOMIB
     Indication: Plasma cell myeloma
     Dosage: UNIT DOSE:1.3 MG/M2, DURATION: 150 DAYS
     Route: 058
     Dates: start: 20170106, end: 20170605
  2. BORTEZOMIB [Suspect]
     Active Substance: BORTEZOMIB
     Dosage: UNIT DOSE:1.8 MG/M2, DURATION: 150 DAYS
     Route: 058
     Dates: start: 20170630
  3. DEXAMETHASONE [Suspect]
     Active Substance: DEXAMETHASONE
     Indication: Plasma cell myeloma
     Dosage: 20 MILLIGRAM DAILY; UNIT DOSE: 20MG, FREQUENCY : ONCE A DAY, DURATION: 396 DAYS
     Route: 048
     Dates: start: 20170106, end: 20170117
  4. DEXAMETHASONE [Suspect]
     Active Substance: DEXAMETHASONE
     Dosage: 4 MILLIGRAM DAILY; UNIT DOSE: 4MG, FREQUENCY : ONCE A DAY, DURATION: 396 DAYS
     Route: 048
     Dates: start: 20180518
  5. DEXAMETHASONE [Suspect]
     Active Substance: DEXAMETHASONE
     Dosage: 4 MILLIGRAM DAILY; UNIT DOSE: 4MG, FREQUENCY : ONCE A DAY, DURATION: 396 DAYS
     Route: 048
     Dates: start: 20171110, end: 20180428
  6. DEXAMETHASONE [Suspect]
     Active Substance: DEXAMETHASONE
     Dosage: 8 MILLIGRAM DAILY; UNIT DOSE: 8MG, FREQUENCY : ONCE A DAY, DURATION: 396 DAYS
     Route: 048
     Dates: start: 20170512, end: 20170613
  7. DEXAMETHASONE [Suspect]
     Active Substance: DEXAMETHASONE
     Dosage: 12 MILLIGRAM DAILY; UNIT DOSE: 12MG, FREQUENCY : ONCE A DAY, DURATION: 396 DAYS
     Route: 048
     Dates: start: 20170217, end: 20170429
  8. DEXAMETHASONE [Suspect]
     Active Substance: DEXAMETHASONE
     Dosage: 8 MILLIGRAM DAILY; UNIT DOSE: 8MG, FREQUENCY : ONCE A DAY, DURATION: 396 DAYS
     Route: 048
     Dates: start: 20170630, end: 20171021
  9. VENETOCLAX [Suspect]
     Active Substance: VENETOCLAX
     Indication: Plasma cell myeloma
     Dosage: FREQUENCY: ONCE A DAY, DURATION: 480 DAYS
     Route: 048
     Dates: start: 20170106, end: 20180501
  10. VENETOCLAX [Suspect]
     Active Substance: VENETOCLAX
     Dosage: FREQUENCY: ONCE A DAY, DURATION: 480 DAYS
     Route: 048
     Dates: start: 20180518
  11. ACYCLOVIR [Concomitant]
     Active Substance: ACYCLOVIR
     Indication: Antiviral prophylaxis
     Dosage: UNIT DOSE: 200MG, FREQUENCY: ONCE EVERY 0.3 DAYS, DURATION: 20 DAYS
     Route: 048
     Dates: start: 20170105, end: 20170125
  12. ACYCLOVIR [Concomitant]
     Active Substance: ACYCLOVIR
     Dosage: UNIT DOSE: 200MG, FREQUENCY: ONCE EVERY 0.3 DAYS, DURATION: 20 DAYS
     Route: 048
     Dates: start: 20170726
  13. AMLODIPINE [Concomitant]
     Active Substance: AMLODIPINE BESYLATE
     Indication: Hypertension
     Dosage: UNIT DOSE: 5MG, DURATION: 265 DAYS
     Route: 048
     Dates: start: 20170830
  14. AMLODIPINE [Concomitant]
     Active Substance: AMLODIPINE BESYLATE
     Dosage: 10 MILLIGRAM DAILY; UNIT DOSE: 10MG, FREQUENCY: ONCE A DAY, DURATION: 265 DAYS
     Route: 048
     Dates: start: 20161102, end: 20170725
  15. ASPIRIN [Concomitant]
     Active Substance: ASPIRIN
     Indication: Prophylaxis
     Dosage: 75 MILLIGRAM DAILY; UNIT DOSE: 75MG, FREQUENCY: ONCE A DAY
     Route: 048
     Dates: start: 20150529
  16. CALCIUM\CHOLECALCIFEROL [Concomitant]
     Active Substance: CALCIUM\CHOLECALCIFEROL
     Indication: Vitamin supplementation
     Dosage: DURATION: 6 YEARS
     Route: 048
     Dates: start: 20170726
  17. CALCIUM\CHOLECALCIFEROL [Concomitant]
     Active Substance: CALCIUM\CHOLECALCIFEROL
     Dosage: DURATION: 6 YEARS
     Route: 048
     Dates: start: 20101202, end: 20170622
  18. COCODAMOL [Concomitant]
     Active Substance: ACETAMINOPHEN\CODEINE PHOSPHATE
     Indication: Headache
     Dosage: UNIT DOSE: 8MG, FREQUENCY: ONCE EVERY 0.2 DAYS
     Route: 048
     Dates: start: 20170729
  19. COCODAMOL [Concomitant]
     Active Substance: ACETAMINOPHEN\CODEINE PHOSPHATE
     Dosage: UNIT DOSE: 8MG, FREQUENCY: ONCE EVERY 0.2 DAYS
     Route: 048
     Dates: start: 20170830
  20. DOMPERIDONE [Concomitant]
     Active Substance: DOMPERIDONE
     Indication: Prophylaxis of nausea and vomiting
     Dosage: UNIT DOSE: 10MG, FREQUENCY: ONCE EVERY 0.3 DAYS, DURATION: 163 DAYS
     Route: 048
     Dates: start: 20170109, end: 20170223
  21. DOMPERIDONE [Concomitant]
     Active Substance: DOMPERIDONE
     Indication: Nausea
     Dosage: 10 MILLIGRAM DAILY; UNIT DOSE: 10MG, FREQUENCY: ONCE DAILY, DURATION: 163 DAYS
     Route: 048
     Dates: start: 20170726
  22. DOMPERIDONE [Concomitant]
     Active Substance: DOMPERIDONE
     Dosage: 10 MILLIGRAM DAILY; UNIT DOSE: 10MG, FREQUENCY: ONCE DAILY, DURATION: 163 DAYS
     Route: 048
     Dates: start: 20170224, end: 20170622
  23. FUROSEMIDE [Concomitant]
     Active Substance: FUROSEMIDE
     Indication: Oedema peripheral
     Dosage: 40 MILLIGRAM DAILY; UNIT DOSE: 40MG, FREQUENCY: ONCE DAILY, DURATION: 134 DAYS
     Route: 048
     Dates: start: 20170208, end: 20170622
  24. FUROSEMIDE [Concomitant]
     Active Substance: FUROSEMIDE
     Indication: Joint swelling
     Dosage: UNIT DOSE: 20MG, DURATION: 134 DAYS
     Route: 048
     Dates: start: 20170726
  25. GABAPENTIN [Concomitant]
     Active Substance: GABAPENTIN
     Indication: Bursitis
     Dosage: UNIT DOSE: 300MG, FREQUENCY: ONCE EVERY 0.3 DAYS
     Route: 048
     Dates: start: 20161117
  26. LANSOPRAZOLE [Concomitant]
     Active Substance: LANSOPRAZOLE
     Indication: Hiatus hernia
     Dosage: UNIT DOSE: 30MG, FREQUENCY: ONCE EVERY 0.5 DAYS, DURATION:  3 YEARS
     Route: 048
     Dates: start: 201308, end: 20170622
  27. LANSOPRAZOLE [Concomitant]
     Active Substance: LANSOPRAZOLE
     Indication: Dyspepsia
     Dosage: UNIT DOSE: 30MG, FREQUENCY: ONCE EVERY 0.5 DAYS
     Route: 048
     Dates: start: 20170726
  28. OXYBUTYNIN [Concomitant]
     Active Substance: OXYBUTYNIN
     Indication: Incontinence
     Dosage: UNIT DOSE: 2.5MG, FREQUENCY: ONCE EVERY 0.5 DAYS, DURATION:  385 DAYS
     Route: 048
     Dates: start: 20170726
  29. OXYBUTYNIN [Concomitant]
     Active Substance: OXYBUTYNIN
     Dosage: UNIT DOSE: 2.5MG, FREQUENCY: ONCE EVERY 0.5 DAYS, DURATION:  385 DAYS
     Route: 048
     Dates: start: 20160602, end: 20170622
  30. PAMIDRONATE [Concomitant]
     Active Substance: PAMIDRONATE DISODIUM
     Indication: Bone pain
     Dosage: 30 MILLIGRAM DAILY; UNIT DOSE: 30MG, FREQUENCY: ONCE A DAY
     Dates: start: 20170728
  31. SULFAMETHOXAZOLE [Concomitant]
     Active Substance: SULFAMETHOXAZOLE
     Indication: Bacterial infection
     Dosage: UNIT DOSE: 960MG, FREQUENCY: ONCE EVERY 0.3 DAYS
     Route: 048
     Dates: start: 20170105
  32. SULFAMETHOXAZOLE [Concomitant]
     Active Substance: SULFAMETHOXAZOLE
     Dosage: UNIT DOSE: 960MG, FREQUENCY: ONCE EVERY 0.3 DAYS
     Route: 048
     Dates: start: 20170726
  33. TRIMETHOPRIM [Concomitant]
     Active Substance: TRIMETHOPRIM
     Indication: Bacterial infection
     Dosage: UNIT DOSE: 960MG, FREQUENCY: ONCE EVERY 0.3 DAYS
     Route: 048
     Dates: start: 20170726
  34. TRIMETHOPRIM [Concomitant]
     Active Substance: TRIMETHOPRIM
     Dosage: UNIT DOSE: 960MG, FREQUENCY: ONCE EVERY 0.3 DAYS
     Route: 048
     Dates: start: 20170105

REACTIONS (2)
  - Pneumonia influenzal [Recovered/Resolved]
  - Urinary tract infection [Recovered/Resolved]

NARRATIVE: CASE EVENT DATE: 20180429
